FAERS Safety Report 5743801-X (Version None)
Quarter: 2008Q2

REPORT INFORMATION
  Report Type: 
  Country: None (occurrence: None)
  Receive Date: 20080519
  Receipt Date: 20080519
  Transmission Date: 20081010
  Serious: No
  Sender: FDA-Public Use
  Company Number: None

PATIENT
  Age: 78 Year
  Sex: Female
  Weight: 53.5244 kg

DRUGS (1)
  1. ADVAIR DISKUS 250/50 [Suspect]
     Indication: ASTHMA
     Dosage: INHALE TWICE DAILY        UASE AT AM + PM
     Route: 055
     Dates: start: 20080509, end: 20080512

REACTIONS (4)
  - FEAR [None]
  - HYPERSENSITIVITY [None]
  - HYPOAESTHESIA [None]
  - PAIN [None]
